FAERS Safety Report 4579419-4 (Version None)
Quarter: 2005Q1

REPORT INFORMATION
  Report Type: 
  Country: None (occurrence: None)
  Receive Date: 20050209
  Receipt Date: 20050125
  Transmission Date: 20050727
  Serious: Yes (Hospitalization)
  Sender: FDA-Public Use
  Company Number: US_0501111581

PATIENT
  Sex: Female

DRUGS (1)
  1. HUMALOG-HUMAN INSULIN (RDNA):  25% LISPRO, 75% NPL (LI [Suspect]

REACTIONS (3)
  - PARAESTHESIA ORAL [None]
  - PHARMACEUTICAL PRODUCT COMPLAINT [None]
  - SWOLLEN TONGUE [None]
